FAERS Safety Report 11657219 (Version 2)
Quarter: 2015Q4

REPORT INFORMATION
  Report Type: Report from Study
  Country: US (occurrence: US)
  Receive Date: 20151023
  Receipt Date: 20151028
  Transmission Date: 20160304
  Serious: No
  Sender: FDA-Public Use
  Company Number: US-ABBVIE-15P-163-1372198-00

PATIENT
  Age: 26 Year
  Sex: Female

DRUGS (3)
  1. NORETHINDRONE ACETATE. [Suspect]
     Active Substance: NORETHINDRONE ACETATE
     Indication: PRODUCT USED FOR UNKNOWN INDICATION
     Route: 065
  2. LUPRON DEPOT [Suspect]
     Active Substance: LEUPROLIDE ACETATE
     Indication: ENDOMETRIOSIS
     Route: 058
     Dates: start: 20141212, end: 20150320
  3. UNKNOWN PRE-NATAL VITAMIN [Concomitant]
     Indication: PRODUCT USED FOR UNKNOWN INDICATION
     Route: 048

REACTIONS (8)
  - Night sweats [Recovering/Resolving]
  - Ovarian cyst ruptured [Not Recovered/Not Resolved]
  - Hot flush [Recovering/Resolving]
  - Migraine [Recovering/Resolving]
  - Abdominal pain [Unknown]
  - Incorrect route of drug administration [Unknown]
  - Insomnia [Recovering/Resolving]
  - Nausea [Unknown]

NARRATIVE: CASE EVENT DATE: 20141213
